FAERS Safety Report 4462541-0 (Version None)
Quarter: 2004Q3

REPORT INFORMATION
  Report Type: 
  Country: None (occurrence: None)
  Receive Date: 20040924
  Receipt Date: 20040909
  Transmission Date: 20050211
  Serious: Yes (Hospitalization)
  Sender: FDA-Public Use
  Company Number: 2004-00509

PATIENT
  Sex: Female

DRUGS (6)
  1. VELCADE [Suspect]
     Indication: MULTIPLE MYELOMA
     Dosage: 3.50 MG
  2. ZOLPIDEM TARTRATE [Concomitant]
  3. AVELOX [Concomitant]
  4. EPREX [Concomitant]
  5. BEHEPAN (CYANOCOBALAMIN) [Concomitant]
  6. DELTISON (PREDNISONE, CALCIUM PHOSPHATE, MAGNESIUM TRISILICATE) [Concomitant]

REACTIONS (1)
  - PNEUMOCYSTIS CARINII INFECTION [None]
